FAERS Safety Report 10896607 (Version 1)
Quarter: 2015Q1

REPORT INFORMATION
  Report Type: Spontaneous
  Country: JP (occurrence: None)
  Receive Date: 20150302
  Receipt Date: 20150302
  Transmission Date: 20150721
  Serious: Yes (Hospitalization, Other)
  Sender: FDA-Public Use
  Company Number: A201309108

PATIENT
  Age: 30 Year
  Sex: Male

DRUGS (15)
  1. ABACAVIR SULFATE + LAMIVUDINE [Suspect]
     Active Substance: ABACAVIR SULFATE\LAMIVUDINE
     Indication: HIV INFECTION
     Route: 048
     Dates: start: 20111117
  2. BAKTAR [Suspect]
     Active Substance: SULFAMETHOXAZOLE\TRIMETHOPRIM
     Indication: PNEUMOCYSTIS JIROVECII PNEUMONIA
     Route: 048
     Dates: start: 20111006, end: 20111027
  3. NORVIR [Concomitant]
     Active Substance: RITONAVIR
  4. SAMITREL (ATOVAQUONE) [Concomitant]
  5. PENTAMIDINE ISETIONATE (PENTAMIDINE ISETHIONATE) [Concomitant]
  6. ATOVAQUONE (ATOVAQUONE) [Concomitant]
  7. TRUVADA [Suspect]
     Active Substance: EMTRICITABINE\TENOFOVIR DISOPROXIL FUMARATE
     Indication: HIV INFECTION
     Route: 048
     Dates: start: 20111111, end: 20111116
  8. DOXIL [Concomitant]
     Active Substance: DOXORUBICIN HYDROCHLORIDE
  9. GRAN (FILGRASTIM) [Concomitant]
  10. BENECID (PROBENECID) [Concomitant]
  11. ZITHROMAC (AZITHROMYCIN) [Concomitant]
  12. VALIXA (VALGANCICLOVIR) TABLET [Suspect]
     Active Substance: VALGANCICLOVIR
     Indication: CYTOMEGALOVIRUS INFECTION
     Route: 048
     Dates: start: 20111206, end: 20111223
  13. PREZISTANAIVE (DARUNAVIR ETHANOLATE) [Concomitant]
  14. ISENTRESS [Concomitant]
     Active Substance: RALTEGRAVIR POTASSIUM
  15. SAWACILLIN (AMOXICILLIN TRIHYDRATE) [Concomitant]

REACTIONS (5)
  - Cytomegalovirus chorioretinitis [None]
  - White blood cell count decreased [None]
  - Hyperamylasaemia [None]
  - Renal impairment [None]
  - Hyperuricaemia [None]

NARRATIVE: CASE EVENT DATE: 20111117
